FAERS Safety Report 22060431 (Version 2)
Quarter: 2023Q1

REPORT INFORMATION
  Report Type: Report from Study
  Country: NL (occurrence: NL)
  Receive Date: 20230303
  Receipt Date: 20230324
  Transmission Date: 20230418
  Serious: Yes (Other)
  Sender: FDA-Public Use
  Company Number: NL-002147023-NVSC2023NL045800

PATIENT
  Sex: Female

DRUGS (3)
  1. OCTREOTIDE ACETATE [Suspect]
     Active Substance: OCTREOTIDE ACETATE
     Indication: Neuroendocrine carcinoma metastatic
     Dosage: 30 MG, QMO
     Route: 030
     Dates: start: 2012
  2. OCTREOTIDE ACETATE [Suspect]
     Active Substance: OCTREOTIDE ACETATE
     Dosage: 1, Q4W
     Route: 030
  3. OCTREOTIDE ACETATE [Suspect]
     Active Substance: OCTREOTIDE ACETATE

REACTIONS (9)
  - Erysipelas [Recovered/Resolved]
  - Macular hole [Unknown]
  - Cataract [Unknown]
  - Transitional cell carcinoma [Unknown]
  - Second primary malignancy [Unknown]
  - Ear infection [Recovered/Resolved]
  - Ear inflammation [Recovered/Resolved]
  - Seborrhoeic dermatitis [Unknown]
  - Hepatic steatosis [Unknown]

NARRATIVE: CASE EVENT DATE: 20140101
